FAERS Safety Report 16562139 (Version 1)
Quarter: 2019Q3

REPORT INFORMATION
  Report Type: Spontaneous
  Country: CA (occurrence: CA)
  Receive Date: 20190711
  Receipt Date: 20190711
  Transmission Date: 20191004
  Serious: Yes (Other)
  Sender: FDA-Public Use
  Company Number: CA-ABBVIE-19K-028-2846154-00

PATIENT
  Age: 82 Year
  Sex: Male

DRUGS (3)
  1. VENETOCLAX. [Suspect]
     Active Substance: VENETOCLAX
     Route: 048
     Dates: end: 2017
  2. VENETOCLAX. [Suspect]
     Active Substance: VENETOCLAX
     Indication: CHRONIC LYMPHOCYTIC LEUKAEMIA
     Route: 048
     Dates: start: 2016
  3. BENADRYL [Suspect]
     Active Substance: DIPHENHYDRAMINE HYDROCHLORIDE
     Indication: PRODUCT USED FOR UNKNOWN INDICATION
     Route: 065

REACTIONS (9)
  - Sinus disorder [Unknown]
  - Asthenia [Unknown]
  - Renal neoplasm [Unknown]
  - Blood iron decreased [Unknown]
  - Procedural pain [Unknown]
  - Vomiting [Unknown]
  - Feeling drunk [Unknown]
  - Fatigue [Unknown]
  - White blood cell count decreased [Unknown]
